FAERS Safety Report 19219553 (Version 4)
Quarter: 2021Q2

REPORT INFORMATION
  Report Type: Spontaneous
  Country: AT (occurrence: AT)
  Receive Date: 20210506
  Receipt Date: 20210628
  Transmission Date: 20210717
  Serious: Yes (Hospitalization, Other)
  Sender: FDA-Public Use
  Company Number: AT-B.I. PHARMACEUTICALS,INC./RIDGEFIELD-2021-BI-098625

PATIENT
  Age: 59 Year
  Sex: Female
  Weight: 70 kg

DRUGS (60)
  1. WELLBUTRIN [Concomitant]
     Active Substance: BUPROPION HYDROCHLORIDE
     Indication: PRODUCT USED FOR UNKNOWN INDICATION
     Dosage: 1?0?0?0
  2. QUETIALAN [Concomitant]
     Active Substance: QUETIAPINE FUMARATE
     Dosage: INCREASE TO 3X1 IF REQUIRED
  3. DOMINAL (PROTHIPENDYL HYDROCHLORIDE) [Concomitant]
     Active Substance: PROTHIPENDYL HYDROCHLORIDE
     Indication: PRODUCT USED FOR UNKNOWN INDICATION
     Dosage: IF REQUIRED
  4. SIFROL [Suspect]
     Active Substance: PRAMIPEXOLE
     Dosage: 0.35 MG, QD
  5. PREGABALIN. [Concomitant]
     Active Substance: PREGABALIN
     Dosage: 0?0?1
  6. SIFROL [Suspect]
     Active Substance: PRAMIPEXOLE
     Dosage: 0.35 MG, Q8H (1.049 MG MILLIGRAM(
  7. SIFROL [Suspect]
     Active Substance: PRAMIPEXOLE
     Dosage: 0.26 MG, QD
  8. OLEOVIT D3 [Concomitant]
     Active Substance: CHOLECALCIFEROL
     Indication: PRODUCT USED FOR UNKNOWN INDICATION
     Dosage: 2.857 DROP, QW
     Route: 065
  9. ATARAXONE [HYDROXYZINE] [Concomitant]
     Active Substance: HYDROXYZINE HYDROCHLORIDE
     Indication: PRODUCT USED FOR UNKNOWN INDICATION
     Dosage: 12.5 MG, Q8H
     Route: 065
  10. ATARAXONE [HYDROXYZINE] [Concomitant]
     Active Substance: HYDROXYZINE HYDROCHLORIDE
     Dosage: INCREASE TO 3X1 IF REQUIRED
  11. NEUPRO [Concomitant]
     Active Substance: ROTIGOTINE
     Indication: PRODUCT USED FOR UNKNOWN INDICATION
     Dosage: 1 DF, QD
  12. OXYGEROLAN [Concomitant]
     Indication: PRODUCT USED FOR UNKNOWN INDICATION
     Dosage: 10 ML, BID
     Route: 065
  13. OXYGEROLAN [Concomitant]
  14. XANOR [Concomitant]
     Active Substance: ALPRAZOLAM
     Indication: PRODUCT USED FOR UNKNOWN INDICATION
     Dosage: 0?0?0?1
  15. RITALIN [Concomitant]
     Active Substance: METHYLPHENIDATE HYDROCHLORIDE
     Dosage: INCREASE TO 3X1 IF REQUIRED
  16. ADAMON [TRAMADOL HYDROCHLORIDE] [Concomitant]
     Dosage: 0?0?1
  17. AKTIFERRIN [FERROUS SULFATE] [Concomitant]
     Indication: PRODUCT USED FOR UNKNOWN INDICATION
     Dosage: 1?0?0?0
  18. SIFROL [Suspect]
     Active Substance: PRAMIPEXOLE
     Dosage: 0.52 MG, QD
  19. PANTOPRAZOLE [Concomitant]
     Active Substance: PANTOPRAZOLE
     Indication: PRODUCT USED FOR UNKNOWN INDICATION
     Dosage: 40 MG, BID
  20. PREGABALIN. [Concomitant]
     Active Substance: PREGABALIN
     Dosage: 75 MG, BID
     Route: 065
  21. TEMESTA [LORAZEPAM] [Concomitant]
     Active Substance: LORAZEPAM
     Dosage: 1?0?1
  22. EFECTIN ER [Concomitant]
     Active Substance: VENLAFAXINE HYDROCHLORIDE
     Indication: PRODUCT USED FOR UNKNOWN INDICATION
     Dosage: 1?0?0
  23. ADAMON [TRAMADOL HYDROCHLORIDE] [Concomitant]
     Indication: PRODUCT USED FOR UNKNOWN INDICATION
  24. QUETIALAN [Concomitant]
     Active Substance: QUETIAPINE FUMARATE
     Indication: PRODUCT USED FOR UNKNOWN INDICATION
     Dosage: UNK, PRN
     Route: 065
  25. SIRDALUD [Concomitant]
     Active Substance: TIZANIDINE
     Indication: PRODUCT USED FOR UNKNOWN INDICATION
     Dosage: 0?0?0?1
  26. PREGABALIN. [Concomitant]
     Active Substance: PREGABALIN
     Dosage: 50 MG, QD
     Route: 065
  27. NEUPRO [Concomitant]
     Active Substance: ROTIGOTINE
     Dosage: 0?0?0?1 (2 MG/24 H)
  28. TEMESTA [LORAZEPAM] [Concomitant]
     Active Substance: LORAZEPAM
     Indication: PRODUCT USED FOR UNKNOWN INDICATION
     Dosage: 2 MG, QD
     Route: 065
  29. PANTOLOC [PANTOPRAZOLE] [Concomitant]
     Active Substance: PANTOPRAZOLE SODIUM
     Indication: PRODUCT USED FOR UNKNOWN INDICATION
     Dosage: 1?0?1?0
  30. THOMAPYRINE [Concomitant]
     Indication: PRODUCT USED FOR UNKNOWN INDICATION
  31. THOMAPYRINE [Concomitant]
  32. DULCOLAX (BISACODYL) [Concomitant]
     Active Substance: BISACODYL
     Indication: CONSTIPATION
  33. OXYGEROLAN [Concomitant]
  34. THOMAPYRIN [ACETYLSALICYLIC ACID;CAFFEINE;PARACETAMOL] [Suspect]
     Active Substance: ACETAMINOPHEN\ASPIRIN\CAFFEINE
     Indication: PRODUCT USED FOR UNKNOWN INDICATION
     Dosage: UNK
  35. DULOXETINE. [Concomitant]
     Active Substance: DULOXETINE
     Indication: PRODUCT USED FOR UNKNOWN INDICATION
     Dosage: 1?0?0
  36. DEPENDEX [Suspect]
     Active Substance: NALTREXONE HYDROCHLORIDE
     Indication: PRODUCT USED FOR UNKNOWN INDICATION
     Dosage: 50 MG, QD (1 ? 0 ? 0 ? 0 )
  37. PREGABALIN. [Concomitant]
     Active Substance: PREGABALIN
     Indication: PRODUCT USED FOR UNKNOWN INDICATION
     Dosage: 1 DF, BID
     Route: 065
  38. LYRICA [Concomitant]
     Active Substance: PREGABALIN
     Dosage: 75 MG (1 ? 1 ? 1 ? 1 ?1)
  39. NEUROMULTIVIT [Concomitant]
     Active Substance: CYANOCOBALAMIN\PYRIDOXINE\THIAMINE
     Indication: PRODUCT USED FOR UNKNOWN INDICATION
     Dosage: 1?0?0
  40. TRITTICO [Concomitant]
     Active Substance: TRAZODONE HYDROCHLORIDE
     Dosage: 0?0?0?1
  41. TRAMAL [Concomitant]
     Active Substance: TRAMADOL
     Dosage: INCREASE TO 3X1 IF REQUIRED
  42. OLEOVIT D3 [Concomitant]
     Active Substance: CHOLECALCIFEROL
     Dosage: 20 GTT PER WEEK
  43. RITALIN [Concomitant]
     Active Substance: METHYLPHENIDATE HYDROCHLORIDE
     Indication: PRODUCT USED FOR UNKNOWN INDICATION
  44. TRITTICO [Concomitant]
     Active Substance: TRAZODONE HYDROCHLORIDE
     Indication: INSOMNIA
     Dosage: 150 0 ? 0 ? 0 ? 1
  45. QUETIALAN [Concomitant]
     Active Substance: QUETIAPINE FUMARATE
  46. SIFROL [Suspect]
     Active Substance: PRAMIPEXOLE
     Indication: RESTLESS LEGS SYNDROME
     Dosage: 0.18 MG ? ? 0 ? 0 ?
  47. SIFROL [Suspect]
     Active Substance: PRAMIPEXOLE
     Dosage: 0.88 MG, BID
  48. TRAMABENE [Concomitant]
     Active Substance: TRAMADOL
     Indication: PRODUCT USED FOR UNKNOWN INDICATION
     Dosage: 0?0?0?1
  49. ATARAXONE [HYDROXYZINE] [Concomitant]
     Active Substance: HYDROXYZINE HYDROCHLORIDE
     Dosage: 3X0.5
  50. PREGABALIN. [Concomitant]
     Active Substance: PREGABALIN
     Dosage: 25 MG, Q8H
     Route: 065
  51. PREGABALIN. [Concomitant]
     Active Substance: PREGABALIN
     Dosage: LEVEL IN TO PREGABALIN WITH 25?0?50 MG AFTER 3 DAYS 50?0?74 MG, TARGET DOSE AFTER 2 WEEKS 2*75 MG PO
  52. PREGABALIN. [Concomitant]
     Active Substance: PREGABALIN
     Dosage: INCREASE TO 3X1 IF REQUIRED
  53. PREGABALIN. [Concomitant]
     Active Substance: PREGABALIN
     Dosage: 50?0?100
  54. NEUPRO [Concomitant]
     Active Substance: ROTIGOTINE
     Dosage: 1 MG (5 P.M.)
  55. TEMESTA [LORAZEPAM] [Concomitant]
     Active Substance: LORAZEPAM
     Dosage: 0.5?0?0?0.5 (PHASE OUT BY PLAN)
  56. LYRICA [Concomitant]
     Active Substance: PREGABALIN
     Indication: SLEEP DISORDER
     Dosage: MAXIMUM 1.00 X DAILY
  57. TRAMAL [Concomitant]
     Active Substance: TRAMADOL
     Indication: PRODUCT USED FOR UNKNOWN INDICATION
  58. PREGABALIN. [Concomitant]
     Active Substance: PREGABALIN
     Dosage: 100 MG, QD
     Route: 065
  59. PREGABALIN. [Concomitant]
     Active Substance: PREGABALIN
     Dosage: 75?0?75
  60. PREGABALIN. [Concomitant]
     Active Substance: PREGABALIN
     Dosage: 1?0?0

REACTIONS (32)
  - Alcohol withdrawal syndrome [Unknown]
  - Sleep apnoea syndrome [Unknown]
  - Hip surgery [Unknown]
  - Drug withdrawal syndrome [Unknown]
  - Attention deficit hyperactivity disorder [Unknown]
  - Nervousness [Unknown]
  - Behaviour disorder [Unknown]
  - Suicide attempt [Recovered/Resolved]
  - Pain [Unknown]
  - Post procedural complication [Unknown]
  - Depression [Unknown]
  - Gambling disorder [Unknown]
  - Irritability [Unknown]
  - Alcoholism [Unknown]
  - Impulse-control disorder [Unknown]
  - Type IIa hyperlipidaemia [Unknown]
  - Bursitis [Unknown]
  - Restless legs syndrome [Unknown]
  - Snoring [Unknown]
  - Back pain [Unknown]
  - Rotator cuff syndrome [Unknown]
  - Drug dependence [Unknown]
  - Restlessness [Unknown]
  - Neurological symptom [Unknown]
  - Gastric ulcer [Unknown]
  - Drug abuse [Unknown]
  - Post-traumatic stress disorder [Unknown]
  - Compulsive shopping [Unknown]
  - Insomnia [Unknown]
  - Alcohol abuse [Unknown]
  - Vitamin D deficiency [Unknown]
  - Spinal pain [Unknown]

NARRATIVE: CASE EVENT DATE: 20180326
